FAERS Safety Report 19913741 (Version 1)
Quarter: 2021Q4

REPORT INFORMATION
  Report Type: Spontaneous
  Country: US (occurrence: US)
  Receive Date: 20211004
  Receipt Date: 20211004
  Transmission Date: 20220303
  Serious: No
  Sender: FDA-Public Use
  Company Number: US-GLENMARK PHARMACEUTICALS-2021GMK067268

PATIENT

DRUGS (1)
  1. DESONIDE [Suspect]
     Active Substance: DESONIDE
     Indication: Pruritus
     Dosage: UNK
     Route: 061

REACTIONS (2)
  - Contraindicated product administered [Unknown]
  - No adverse event [Unknown]
